FAERS Safety Report 9001076 (Version 1)
Quarter: 2012Q4

REPORT INFORMATION
  Report Type: Spontaneous
  Country: US (occurrence: None)
  Receive Date: 20121226
  Receipt Date: 20121226
  Transmission Date: 20130627
  Serious: Yes (Other)
  Sender: FDA-Public Use
  Company Number: ACO_33417_2012

PATIENT
  Age: 54 Year
  Sex: Female
  Weight: 65.8 kg

DRUGS (7)
  1. AMPYRA (DALFAMPRIDINE) TABLET, 10MG [Suspect]
     Route: 048
     Dates: end: 201210
  2. AMPYRA (DALFAMPRIDINE) TABLET, 10MG [Suspect]
     Dosage: one tablet
     Route: 048
     Dates: start: 201210
  3. INSULIN (INSULIN) [Concomitant]
  4. METFORMIN (METFORMIN) [Concomitant]
  5. PRAVASTATIN (PRAVASTATIN SODIUM) [Concomitant]
  6. ARIMIDEX (ANASTROZOLE) [Concomitant]
  7. ALL OTHER NON-THERAPEUTIC PRODUCTS [Concomitant]

REACTIONS (3)
  - Facial bones fracture [None]
  - Fall [None]
  - Inappropriate schedule of drug administration [None]
